FAERS Safety Report 17192101 (Version 1)
Quarter: 2019Q4

REPORT INFORMATION
  Report Type: Spontaneous
  Country: IR (occurrence: IR)
  Receive Date: 20191223
  Receipt Date: 20191223
  Transmission Date: 20200122
  Serious: Yes (Other)
  Sender: FDA-Public Use
  Company Number: IR-PFIZER INC-2019340361

PATIENT
  Age: 35 Year
  Sex: Male

DRUGS (1)
  1. SILDENAFIL CITRATE. [Suspect]
     Active Substance: SILDENAFIL CITRATE
     Dosage: 100 MG, 4X/DAY (IN A LIMITED PERIOD (3 DAYS)

REACTIONS (4)
  - Off label use [Unknown]
  - Headache [Unknown]
  - Product use issue [Unknown]
  - Chorioretinopathy [Unknown]
